FAERS Safety Report 21665998 (Version 2)
Quarter: 2022Q4

REPORT INFORMATION
  Report Type: Spontaneous
  Country: FR (occurrence: FR)
  Receive Date: 20221201
  Receipt Date: 20221208
  Transmission Date: 20230113
  Serious: Yes (Hospitalization, Other)
  Sender: FDA-Public Use
  Company Number: FR-ASTELLAS-2022EU000093

PATIENT
  Age: 80 Year
  Sex: Male

DRUGS (2)
  1. BENDAMUSTINE HYDROCHLORIDE [Suspect]
     Active Substance: BENDAMUSTINE HYDROCHLORIDE
     Indication: Lymphoma
     Route: 042
     Dates: start: 20210809
  2. VELCADE [Suspect]
     Active Substance: BORTEZOMIB
     Indication: Lymphoma
     Route: 065
     Dates: start: 20210809

REACTIONS (2)
  - Rash maculo-papular [Not Recovered/Not Resolved]
  - Toxic skin eruption [Not Recovered/Not Resolved]

NARRATIVE: CASE EVENT DATE: 20210819
